FAERS Safety Report 5014944-3 (Version None)
Quarter: 2006Q2

REPORT INFORMATION
  Report Type: 
  Country: None (occurrence: None)
  Receive Date: 20060412
  Receipt Date: 20050426
  Transmission Date: 20061013
  Serious: Yes (Other)
  Sender: FDA-Public Use
  Company Number: PHEH2005US04901

PATIENT
  Age: 61 Year
  Sex: Female

DRUGS (2)
  1. FORADIL [Suspect]
     Dosage: INHALATION
     Route: 055
  2. PULMOMATE COMPRESSOR NEBULIZER [Concomitant]

REACTIONS (2)
  - ASTHMA [None]
  - BRONCHOSPASM [None]
